FAERS Safety Report 9125163 (Version 1)
Quarter: 2013Q1

REPORT INFORMATION
  Report Type: Spontaneous
  Country: ZA (occurrence: ZA)
  Receive Date: 20130117
  Receipt Date: 20130117
  Transmission Date: 20140127
  Serious: Yes (Hospitalization, Other)
  Sender: FDA-Public Use
  Company Number: ZA-JNJFOC-20130109186

PATIENT
  Sex: 0

DRUGS (9)
  1. KETOCONAZOLE [Suspect]
     Indication: FUNGAL INFECTION
     Route: 065
  2. FLUCONAZOLE [Suspect]
     Indication: FUNGAL INFECTION
     Route: 065
  3. ITRACONAZOLE [Suspect]
     Indication: FUNGAL INFECTION
     Route: 065
  4. DIDANOSINE [Interacting]
     Indication: HIV INFECTION
     Route: 065
  5. INDINAVIR [Interacting]
     Indication: HIV INFECTION
     Route: 065
  6. LOPINAVIR [Interacting]
     Indication: HIV INFECTION
     Route: 065
  7. RITONAVIR [Interacting]
     Indication: HIV INFECTION
     Route: 065
  8. SAQUINAVIR [Interacting]
     Indication: HIV INFECTION
     Route: 065
  9. SAQUINAVIR MESYLATE [Interacting]
     Indication: HIV INFECTION
     Route: 065

REACTIONS (3)
  - Drug interaction [Unknown]
  - Hyperbilirubinaemia [Unknown]
  - Transaminases increased [Unknown]
